FAERS Safety Report 18462868 (Version 1)
Quarter: 2020Q4

REPORT INFORMATION
  Report Type: Spontaneous
  Country: PT (occurrence: PT)
  Receive Date: 20201104
  Receipt Date: 20201104
  Transmission Date: 20210114
  Serious: Yes (Life-Threatening, Hospitalization, Other)
  Sender: FDA-Public Use
  Company Number: PT-VALIDUS PHARMACEUTICALS LLC-PT-2020VAL000857

PATIENT

DRUGS (3)
  1. SULFAMETHOXAZOLE AND TRIMETHOPRIM [Suspect]
     Active Substance: SULFAMETHOXAZOLE\TRIMETHOPRIM
     Indication: INTERSTITIAL LUNG DISEASE
     Dosage: UNK
     Route: 065
  2. CEFOTAXIME SODIUM [Suspect]
     Active Substance: CEFOTAXIME SODIUM
     Indication: INTERSTITIAL LUNG DISEASE
     Dosage: UNK
     Route: 065
  3. AZITHROMYCIN ANHYDROUS. [Suspect]
     Active Substance: AZITHROMYCIN ANHYDROUS
     Indication: INTERSTITIAL LUNG DISEASE
     Dosage: 500 MG, UNK
     Route: 042

REACTIONS (6)
  - Electrocardiogram QT prolonged [Recovered/Resolved]
  - Dizziness [Recovered/Resolved]
  - Hyperhidrosis [Recovered/Resolved]
  - Sinus bradycardia [Recovered/Resolved]
  - Terminal state [Recovered/Resolved]
  - Electrocardiogram abnormal [Recovered/Resolved]
